FAERS Safety Report 9930359 (Version 2)
Quarter: 2014Q1

REPORT INFORMATION
  Report Type: Spontaneous
  Country: US (occurrence: US)
  Receive Date: 20140227
  Receipt Date: 20140227
  Transmission Date: 20141002
  Serious: No
  Sender: FDA-Public Use
  Company Number: US-AMGEN-USASP2013044418

PATIENT
  Age: 6 Month
  Sex: Male
  Weight: 5.9 kg

DRUGS (4)
  1. ENBREL [Suspect]
     Indication: PRODUCT USED FOR UNKNOWN INDICATION
     Dosage: 50 MG, QWK
     Route: 063
     Dates: start: 20130515
  2. PLAQUENIL                          /00072602/ [Concomitant]
     Indication: RHEUMATOID ARTHRITIS
     Dosage: 400 MG, QD
     Route: 063
     Dates: start: 201302
  3. PREDNISONE [Concomitant]
     Indication: RHEUMATOID ARTHRITIS
     Dosage: 20 MG, QD
     Route: 063
     Dates: start: 201302
  4. CYMBALTA [Concomitant]
     Indication: DEPRESSION
     Dosage: 60 MG, QD
     Route: 063
     Dates: start: 201011, end: 201308

REACTIONS (2)
  - Exposure during breast feeding [Recovered/Resolved]
  - Weight gain poor [Unknown]
